FAERS Safety Report 4630663-7 (Version None)
Quarter: 2005Q2

REPORT INFORMATION
  Report Type: 
  Country: None (occurrence: None)
  Receive Date: 20050406
  Receipt Date: 20050324
  Transmission Date: 20051028
  Serious: Yes (Hospitalization)
  Sender: FDA-Public Use
  Company Number: 2005-BP-04865BP

PATIENT
  Age: 54 Year
  Sex: Female

DRUGS (1)
  1. CATAPRES [Suspect]
     Indication: HYPERTENSION
     Dosage: 0.3 MG (7.5 MG, 3 PATCH Q WEEK), PO
     Route: 048

REACTIONS (1)
  - BENIGN NEOPLASM OF THYROID GLAND [None]
